FAERS Safety Report 4693227-5 (Version None)
Quarter: 2005Q2

REPORT INFORMATION
  Report Type: 
  Country: None (occurrence: None)
  Receive Date: 20050617
  Receipt Date: 20050606
  Transmission Date: 20051028
  Serious: Yes (Other)
  Sender: FDA-Public Use
  Company Number: GB-GLAXOSMITHKLINE-B0384338A

PATIENT
  Age: 38 Year
  Sex: Female

DRUGS (1)
  1. NIQUITIN CQ 21MG [Suspect]
     Dosage: 21MG PER DAY
     Route: 062
     Dates: start: 20050517, end: 20050523

REACTIONS (2)
  - ERYTHEMA [None]
  - LOCAL SWELLING [None]
